APPROVED DRUG PRODUCT: FLUPHENAZINE HYDROCHLORIDE
Active Ingredient: FLUPHENAZINE HYDROCHLORIDE
Strength: 1MG
Dosage Form/Route: TABLET;ORAL
Application: A216350 | Product #001 | TE Code: AB
Applicant: GLENMARK PHARMACEUTICALS LTD
Approved: Nov 6, 2023 | RLD: No | RS: No | Type: RX